FAERS Safety Report 6057521-8 (Version None)
Quarter: 2009Q1

REPORT INFORMATION
  Report Type: 
  Country: None (occurrence: None)
  Receive Date: 20090129
  Receipt Date: 20090119
  Transmission Date: 20090719
  Serious: Yes (Death, Hospitalization)
  Sender: FDA-Public Use
  Company Number: CA-ABBOTT-09P-028-0498799-00

PATIENT
  Sex: Male

DRUGS (13)
  1. LUPRON DEPOT [Suspect]
     Indication: PROSTATE CANCER
     Route: 050
     Dates: start: 20040622, end: 20080918
  2. CASODEX [Concomitant]
     Indication: DRUG USE FOR UNKNOWN INDICATION
  3. DIANE 35 [Concomitant]
     Indication: DRUG USE FOR UNKNOWN INDICATION
  4. COREG [Concomitant]
     Indication: DRUG USE FOR UNKNOWN INDICATION
  5. ALTACE [Concomitant]
     Indication: DRUG USE FOR UNKNOWN INDICATION
  6. FLOMAX [Concomitant]
     Indication: DRUG USE FOR UNKNOWN INDICATION
  7. SYNTHROID [Concomitant]
     Indication: DRUG USE FOR UNKNOWN INDICATION
  8. COUMADIN [Concomitant]
     Indication: DRUG USE FOR UNKNOWN INDICATION
     Dosage: 2MG  OR 2.5MG
  9. PREVACID [Concomitant]
     Indication: DRUG USE FOR UNKNOWN INDICATION
  10. SALBUTAMOL [Concomitant]
     Indication: DRUG USE FOR UNKNOWN INDICATION
  11. FLOVENT [Concomitant]
     Indication: DRUG USE FOR UNKNOWN INDICATION
  12. NITROGLYCERIN [Concomitant]
     Indication: DRUG USE FOR UNKNOWN INDICATION
  13. OXYCODONE [Concomitant]
     Indication: DRUG USE FOR UNKNOWN INDICATION

REACTIONS (4)
  - BLOOD CALCIUM DECREASED [None]
  - CONDITION AGGRAVATED [None]
  - HYPOTENSION [None]
  - ILL-DEFINED DISORDER [None]
